FAERS Safety Report 8609457-3 (Version None)
Quarter: 2012Q3

REPORT INFORMATION
  Report Type: 
  Country: None (occurrence: None)
  Receive Date: 20120821
  Receipt Date: 20120815
  Transmission Date: 20120928
  Serious: Yes (Hospitalization, Other)
  Sender: FDA-Public Use
  Company Number: US-PFIZER INC-2012199949

PATIENT
  Age: 55 Year
  Sex: Female
  Weight: 56.689 kg

DRUGS (3)
  1. REVATIO [Suspect]
     Indication: CARDIAC DISORDER
     Dosage: 60 MG, 3X/DAY
     Dates: start: 20100101, end: 20120801
  2. TRAZODONE [Concomitant]
     Indication: INSOMNIA
     Dosage: UNK, DAILY (50MG TO 100MG DAILY)
  3. OMEPRAZOLE [Concomitant]
     Dosage: 20 MG, DAILY

REACTIONS (2)
  - ANXIETY [None]
  - BLOOD ELECTROLYTES DECREASED [None]
